FAERS Safety Report 4557916-5 (Version None)
Quarter: 2005Q1

REPORT INFORMATION
  Report Type: 
  Country: None (occurrence: None)
  Receive Date: 20050121
  Receipt Date: 20040123
  Transmission Date: 20050727
  Serious: No
  Sender: FDA-Public Use
  Company Number: US-BRISTOL-MYERS SQUIBB COMPANY-12487054

PATIENT
  Age: 63 Year
  Sex: Male
  Weight: 154 kg

DRUGS (6)
  1. SERZONE [Suspect]
     Indication: DEPRESSION
     Route: 048
     Dates: start: 20030701
  2. CEPHALEXIN [Concomitant]
  3. METFORMIN HCL [Concomitant]
  4. FLOMAX [Concomitant]
  5. TRIAMTERENE [Concomitant]
  6. MULTI-VITAMIN [Concomitant]

REACTIONS (4)
  - BLOOD CREATININE INCREASED [None]
  - ERECTILE DYSFUNCTION [None]
  - POLLAKIURIA [None]
  - SLEEP DISORDER [None]
